FAERS Safety Report 12687808 (Version 1)
Quarter: 2016Q3

REPORT INFORMATION
  Report Type: Spontaneous
  Country: TN (occurrence: TN)
  Receive Date: 20160826
  Receipt Date: 20160826
  Transmission Date: 20161109
  Serious: Yes (Death, Other)
  Sender: FDA-Public Use
  Company Number: TN-ACCORD-043386

PATIENT
  Age: 50 Year
  Sex: Male

DRUGS (10)
  1. CYCLOPHOSPHAMIDE/CYCLOPHOSPHAMIDE MONOHYDRATE [Suspect]
     Active Substance: CYCLOPHOSPHAMIDE
     Indication: HODGKIN^S DISEASE MIXED CELLULARITY STAGE III
     Dosage: ON DAY 1 AND DAY 8 (8 CYCLES)
  2. PREDNISONE/PREDNISONE ACETATE [Suspect]
     Active Substance: PREDNISONE ACETATE
     Indication: HODGKIN^S DISEASE MIXED CELLULARITY STAGE III
     Dosage: ON DAY 1 AND DAY 8 (8 CYCLES)
  3. ETOPOSIDE. [Suspect]
     Active Substance: ETOPOSIDE
     Indication: HODGKIN^S DISEASE MIXED CELLULARITY STAGE III
     Dosage: ON DAY 1 AND DAY 8 (8 CYCLES)
  4. DOXORUBICIN/DOXORUBICIN HYDROCHLORIDE [Suspect]
     Active Substance: DOXORUBICIN HYDROCHLORIDE
     Indication: HODGKIN^S DISEASE MIXED CELLULARITY STAGE III
     Dosage: ON DAY 1 AND DAY 8 (8 CYCLES)
  5. VINCRISTINE [Suspect]
     Active Substance: VINCRISTINE
     Indication: HODGKIN^S DISEASE MIXED CELLULARITY STAGE III
     Dosage: ON DAY 1 AND DAY 8 (8 CYCLES)
  6. PROCARBAZINE/PROCARBAZINE HYDROCHLORIDE [Suspect]
     Active Substance: PROCARBAZINE HYDROCHLORIDE
     Indication: HODGKIN^S DISEASE MIXED CELLULARITY STAGE III
     Dosage: ON DAY 1 AND DAY 8 (8 CYCLES)
  7. BLEOMYCIN [Suspect]
     Active Substance: BLEOMYCIN SULFATE
     Indication: HODGKIN^S DISEASE MIXED CELLULARITY STAGE III
     Dosage: 4 CYCLES, ALSO RECEIVED AT 10 MG/M^2 ON DAY 1 AND 8 FOR SAME INDICATION (BEACOPP CHEMOTHERAPY)
  8. DACARBAZINE/DACARBAZINE CITRATE [Suspect]
     Active Substance: DACARBAZINE CITRATE
     Indication: HODGKIN^S DISEASE MIXED CELLULARITY STAGE III
     Dosage: 4 CYCLES
  9. VINBLASTINE/VINBLASTINE SULFATE [Suspect]
     Active Substance: VINBLASTINE\VINBLASTINE SULFATE
     Indication: HODGKIN^S DISEASE MIXED CELLULARITY STAGE III
     Dosage: 4 CYCLES
  10. PREDNISONE/PREDNISONE ACETATE [Concomitant]
     Active Substance: PREDNISONE ACETATE
     Indication: HODGKIN^S DISEASE MIXED CELLULARITY STAGE III
     Dosage: HIGH DOSES

REACTIONS (2)
  - Sepsis [Fatal]
  - Drug ineffective [Unknown]
